FAERS Safety Report 22111416 (Version 1)
Quarter: 2023Q1

REPORT INFORMATION
  Report Type: Spontaneous
  Country: CH (occurrence: CH)
  Receive Date: 20230317
  Receipt Date: 20230317
  Transmission Date: 20230418
  Serious: Yes (Life-Threatening, Other)
  Sender: FDA-Public Use
  Company Number: CH-002147023-NVSC2023CH058621

PATIENT
  Sex: Female

DRUGS (1)
  1. ERENUMAB [Suspect]
     Active Substance: ERENUMAB
     Indication: Product used for unknown indication
     Dosage: UNK
     Route: 065

REACTIONS (11)
  - Near death experience [Unknown]
  - Ileus paralytic [Unknown]
  - Impaired gastric emptying [Unknown]
  - Starvation [Unknown]
  - Neuromyopathy [Unknown]
  - Muscle disorder [Unknown]
  - Mitochondrial DNA mutation [Unknown]
  - Dehydration [Unknown]
  - Vestibular migraine [Unknown]
  - Hemiplegic migraine [Unknown]
  - Weight decreased [Unknown]
